FAERS Safety Report 24978025 (Version 1)
Quarter: 2025Q1

REPORT INFORMATION
  Report Type: Spontaneous
  Country: US (occurrence: US)
  Receive Date: 20250217
  Receipt Date: 20250217
  Transmission Date: 20250408
  Serious: No
  Sender: PERRIGO
  Company Number: US-PERRIGO-24US002531

PATIENT
  Sex: Male
  Weight: 95.238 kg

DRUGS (1)
  1. NICOTINE POLACRILEX [Suspect]
     Active Substance: NICOTINE
     Indication: Smoking cessation therapy
     Route: 002

REACTIONS (4)
  - Flatulence [Recovered/Resolved]
  - Abdominal discomfort [Recovered/Resolved]
  - Incorrect dose administered [Unknown]
  - Wrong technique in product usage process [Unknown]
